FAERS Safety Report 5350535-2 (Version None)
Quarter: 2007Q2

REPORT INFORMATION
  Report Type: 
  Country: None (occurrence: None)
  Receive Date: 20070608
  Receipt Date: 20070605
  Transmission Date: 20071010
  Serious: Yes (Life-Threatening)
  Sender: FDA-Public Use
  Company Number: TR-ABBOTT-07P-161-0368711-00

PATIENT
  Age: 54 Year
  Sex: Female
  Weight: 70 kg

DRUGS (1)
  1. KLACID MR [Suspect]
     Indication: TONSILLITIS
     Route: 048
     Dates: start: 20070517, end: 20070517

REACTIONS (1)
  - SUICIDE ATTEMPT [None]
